FAERS Safety Report 4948765-4 (Version None)
Quarter: 2006Q1

REPORT INFORMATION
  Report Type: 
  Country: None (occurrence: None)
  Receive Date: 20060321
  Receipt Date: 20060309
  Transmission Date: 20060701
  Serious: Yes (Hospitalization)
  Sender: FDA-Public Use
  Company Number: ES-JNJFOC-20051002925

PATIENT
  Age: 60 Year
  Sex: Male
  Weight: 75 kg

DRUGS (5)
  1. REMICADE [Suspect]
     Indication: RHEUMATOID ARTHRITIS
     Dosage: 3MG/KG; 19 INFUSIONS IN TOTAL
     Route: 042
  2. METHOTREXATE [Concomitant]
  3. ACFOL [Concomitant]
  4. DEZACOR [Concomitant]
  5. CELEBREX [Concomitant]

REACTIONS (6)
  - ABDOMINAL DISTENSION [None]
  - ANAL FISTULA [None]
  - CHILLS [None]
  - NIGHT SWEATS [None]
  - PYREXIA [None]
  - TUBERCULOSIS GASTROINTESTINAL [None]
